FAERS Safety Report 20887630 (Version 1)
Quarter: 2022Q2

REPORT INFORMATION
  Report Type: Spontaneous
  Country: GB (occurrence: GB)
  Receive Date: 20220528
  Receipt Date: 20220528
  Transmission Date: 20220721
  Serious: Yes (Hospitalization)
  Sender: FDA-Public Use
  Company Number: GB-LUPIN PHARMACEUTICALS INC.-2022-07561

PATIENT
  Age: 5 Decade
  Sex: Female

DRUGS (17)
  1. CALCIUM [Suspect]
     Active Substance: CALCIUM
     Indication: Hypocalcaemia
     Dosage: 20 ML 4.5 MMOL 1 HOURLY
     Route: 042
  2. CALCIUM [Suspect]
     Active Substance: CALCIUM
     Dosage: 100 ML 22.5 MMOL 10 HOURLY
     Route: 042
  3. POTASSIUM CHLORIDE\SODIUM CHLORIDE [Suspect]
     Active Substance: POTASSIUM CHLORIDE\SODIUM CHLORIDE
     Indication: Hypokalaemia
     Dosage: SODIUM-CHLORIDE 0.9% 1 L WITH POTASSIUM-CHLORIDE 40 MMOL 4 HOURLY (X3)
     Route: 042
  4. POTASSIUM CHLORIDE\SODIUM CHLORIDE [Suspect]
     Active Substance: POTASSIUM CHLORIDE\SODIUM CHLORIDE
     Indication: Hypercalcaemia
     Dosage: SODIUM-CHLORIDE 0.9% 1 L WITH POTASSIUM-CHLORIDE 40 MMOL 8 HOURLY
     Route: 042
  5. POTASSIUM CHLORIDE\SODIUM CHLORIDE [Suspect]
     Active Substance: POTASSIUM CHLORIDE\SODIUM CHLORIDE
     Dosage: SODIUM-CHLORIDE 0.9% 1 L WITH POTASSIUM-CHLORIDE 40 MMOL 6 HOURLY
     Route: 042
  6. POTASSIUM CHLORIDE\SODIUM CHLORIDE [Suspect]
     Active Substance: POTASSIUM CHLORIDE\SODIUM CHLORIDE
     Dosage: SODIUM-CHLORIDE 0.9% 1 L WITH POTASSIUM-CHLORIDE 20 MMOL 8 HOURLY
     Route: 042
  7. POTASSIUM BICARBONATE\POTASSIUM CHLORIDE [Suspect]
     Active Substance: POTASSIUM BICARBONATE\POTASSIUM CHLORIDE
     Indication: Hypokalaemia
     Dosage: 1 WEEK OF ORAL POTASSIUM-BICARBONATE/POTASSIUM-CHLORIDE (TWO SACHETS THREE TIMES A DAY)
     Route: 048
  8. POTASSIUM PHOSPHATE\SODIUM PHOSPHATE [Suspect]
     Active Substance: POTASSIUM PHOSPHATE\SODIUM PHOSPHATE
     Indication: Hypokalaemia
     Dosage: 25 MILLIMOLE, BID (250 ML WITH 25 MMOL 12 HOURLY)
     Route: 042
  9. MAGNESIUM SULFATE [Suspect]
     Active Substance: MAGNESIUM SULFATE
     Indication: Hypomagnesaemia
     Dosage: 20 MILLIMOLE
     Route: 065
  10. MAGNESIUM SULFATE [Suspect]
     Active Substance: MAGNESIUM SULFATE
     Dosage: 10 MMOL MAGNESIUM 4 HOURLY
     Route: 065
  11. SODIUM CHLORIDE [Suspect]
     Active Substance: SODIUM CHLORIDE
     Indication: Hypocalcaemia
     Dosage: 1 LITER 6 HOURLY (2 TIMES)
     Route: 065
  12. SODIUM CHLORIDE [Suspect]
     Active Substance: SODIUM CHLORIDE
     Dosage: 500 MILLILITER
     Route: 065
  13. SODIUM CHLORIDE [Suspect]
     Active Substance: SODIUM CHLORIDE
     Dosage: 100 MILLILITER
     Route: 065
  14. ZOLEDRONIC ACID [Concomitant]
     Active Substance: ZOLEDRONIC ACID
     Indication: Hypercalcaemia
     Dosage: 4 MG/100 ML INTRAVENOUSLY OVER 15 MIN
     Route: 042
  15. CALCIUM\CHOLECALCIFEROL [Concomitant]
     Active Substance: CALCIUM\CHOLECALCIFEROL
     Indication: Hypocalcaemia
     Dosage: 2 DOSAGE FORM, BID
     Route: 065
  16. BACLOFEN [Concomitant]
     Active Substance: BACLOFEN
     Indication: Tetany
     Dosage: 5 MG, TID
     Route: 048
  17. DEXTROSE [Concomitant]
     Active Substance: DEXTROSE
     Indication: Product used for unknown indication
     Dosage: 100 MILLILITER
     Route: 042

REACTIONS (1)
  - Therapy non-responder [Unknown]
